FAERS Safety Report 10583683 (Version 2)
Quarter: 2016Q1

REPORT INFORMATION
  Report Type: Report from Study
  Country: GB (occurrence: GB)
  Receive Date: 20141114
  Receipt Date: 20160226
  Transmission Date: 20160525
  Serious: Yes (Hospitalization)
  Sender: FDA-Public Use
  Company Number: GB-MUNDIPHARMA DS AND PHARMACOVIGILANCE-GBR-2014-0023757

PATIENT
  Sex: Female

DRUGS (7)
  1. AMITRIPTYLENE [Concomitant]
     Active Substance: AMITRIPTYLINE
     Dosage: 10 MG, NOCTE
  2. OMEPRAZOLE. [Concomitant]
     Active Substance: OMEPRAZOLE
     Dosage: 40 MG, DAILY
  3. MORPHINE SULFATE. [Suspect]
     Active Substance: MORPHINE SULFATE
     Indication: BACK PAIN
     Dosage: 20 MG, BID
     Route: 065
  4. CODEINE W/PARACETAMOL [Concomitant]
     Active Substance: ACETAMINOPHEN\CODEINE PHOSPHATE
  5. SEVREDOL TABLETS [Suspect]
     Active Substance: MORPHINE
     Indication: BACK PAIN
     Dosage: UNK UNK, PRN
     Route: 065
  6. COCODAMOL [Concomitant]
     Active Substance: ACETAMINOPHEN\CODEINE PHOSPHATE
     Dosage: 30/500, 2,OR 3 TIMES DAILY
  7. FLUOXETINE [Concomitant]
     Active Substance: FLUOXETINE HYDROCHLORIDE
     Dosage: 20 MG, DAILY

REACTIONS (2)
  - Diverticulitis [Recovered/Resolved]
  - Ileus paralytic [Recovered/Resolved]
